FAERS Safety Report 5611394-3 (Version None)
Quarter: 2008Q1

REPORT INFORMATION
  Report Type: 
  Country: None (occurrence: None)
  Receive Date: 20080201
  Receipt Date: 20080123
  Transmission Date: 20080703
  Serious: Yes (Death, Hospitalization, Other)
  Sender: FDA-Public Use
  Company Number: LY-ABBOTT-08R-097-0433135-00

PATIENT
  Sex: Female
  Weight: 1.16 kg

DRUGS (4)
  1. SURVANTA [Suspect]
     Indication: NEONATAL RESPIRATORY DISTRESS SYNDROME
     Dosage: UNIT DOSE = 4ML/KG NOT LESS THAN 6 HOURS.
     Route: 007
     Dates: start: 20071211, end: 20071211
  2. SURVANTA [Suspect]
     Dosage: UNIT DOSE = 4ML/KG NOT LESS THAN 6 HOURS.
     Route: 007
     Dates: start: 20071212, end: 20071212
  3. AMPICILLIN [Concomitant]
     Indication: PROPHYLAXIS
     Route: 042
     Dates: start: 20071211, end: 20071212
  4. GENTAMICIN [Concomitant]
     Indication: PROPHYLAXIS
     Route: 042
     Dates: start: 20071211, end: 20071212

REACTIONS (5)
  - APNOEA [None]
  - BRADYCARDIA [None]
  - DYSPNOEA [None]
  - HYPOTONIA [None]
  - PLACENTAL TRANSFUSION SYNDROME [None]
